FAERS Safety Report 9030481 (Version 1)
Quarter: 2013Q1

REPORT INFORMATION
  Report Type: Spontaneous
  Country: AU (occurrence: AU)
  Receive Date: 20130122
  Receipt Date: 20130122
  Transmission Date: 20140127
  Serious: Yes (Other)
  Sender: FDA-Public Use
  Company Number: AU-PFIZER INC-2012268438

PATIENT
  Age: 50 Year
  Sex: Male
  Weight: 80 kg

DRUGS (3)
  1. EFEXOR XR [Suspect]
     Indication: DEPRESSION
     Dosage: 37.5 MG, 2X/DAY
     Route: 048
     Dates: start: 201211, end: 201211
  2. EFEXOR XR [Suspect]
     Indication: POST-TRAUMATIC STRESS DISORDER
  3. COCAINE [Concomitant]
     Dosage: THREE TIMES PER WEEK

REACTIONS (15)
  - Toxicity to various agents [Recovered/Resolved]
  - Tremor [Recovered/Resolved]
  - Anxiety [Recovered/Resolved]
  - Nausea [Recovered/Resolved]
  - Insomnia [Recovered/Resolved]
  - Agitation [Recovered/Resolved]
  - Hyperhidrosis [Recovered/Resolved]
  - Headache [Unknown]
  - Fear [Unknown]
  - Decreased appetite [Unknown]
  - Nightmare [Unknown]
  - Panic reaction [Unknown]
  - Sexual dysfunction [Unknown]
  - Palpitations [Recovered/Resolved]
  - Vomiting [Recovered/Resolved]
